FAERS Safety Report 7545515-2 (Version None)
Quarter: 2011Q2

REPORT INFORMATION
  Report Type: 
  Country: None (occurrence: None)
  Receive Date: 20110614
  Receipt Date: 20110120
  Transmission Date: 20111010
  Serious: Yes (Hospitalization, Other)
  Sender: FDA-Public Use
  Company Number: US-BAYER-201039085NA

PATIENT
  Age: 33 Year
  Sex: Female
  Weight: 117.91 kg

DRUGS (9)
  1. YAZ [Suspect]
     Indication: ACNE
  2. YAZ [Suspect]
     Indication: CONTRACEPTION
  3. YASMIN [Suspect]
     Indication: ACNE
  4. ALBUTEROL SULFATE AUTOHALER [Concomitant]
  5. NEXIUM [Concomitant]
  6. SKELAXIN [Concomitant]
     Indication: ANALGESIC THERAPY
  7. YASMIN [Suspect]
     Indication: CONTRACEPTION
  8. HYDROCODONE BITARTRATE [Concomitant]
     Indication: ANALGESIC THERAPY
  9. DROSPIRENONE AND ETHINYL ESTRADIOL [Suspect]
     Indication: ACNE

REACTIONS (3)
  - PAIN [None]
  - GALLBLADDER DISORDER [None]
  - CHOLECYSTITIS [None]
